FAERS Safety Report 15681653 (Version 1)
Quarter: 2018Q4

REPORT INFORMATION
  Report Type: Spontaneous
  Country: FR (occurrence: FR)
  Receive Date: 20181203
  Receipt Date: 20181203
  Transmission Date: 20190205
  Serious: Yes (Hospitalization)
  Sender: FDA-Public Use
  Company Number: FR-TEVA-2018-FR-980885

PATIENT
  Age: 76 Year
  Sex: Male

DRUGS (8)
  1. VANCOMYCINE [Suspect]
     Active Substance: VANCOMYCIN
     Indication: LUNG INFECTION
     Dosage: 2 GRAM DAILY;
     Route: 042
     Dates: start: 20180906, end: 20180926
  2. DAUNORUBICINE [Concomitant]
     Active Substance: DAUNORUBICIN
     Route: 042
     Dates: start: 20180905, end: 20180910
  3. CYTARABINE. [Concomitant]
     Active Substance: CYTARABINE
     Route: 042
     Dates: start: 20180905, end: 20180910
  4. MEROPENEM TRIHYDRATE [Concomitant]
     Active Substance: MEROPENEM
     Route: 042
     Dates: start: 20180909
  5. OFLOCET 200 MG, COMPRIM? PELLICUL? S?CABLE [Concomitant]
     Active Substance: OFLOXACIN
     Route: 048
     Dates: start: 20180830, end: 20180930
  6. KEPPRA 100 MG/ML, SOLUTION ? DILUER POUR PERFUSION [Concomitant]
     Route: 042
     Dates: start: 20180902
  7. VORICONAZOLE. [Concomitant]
     Active Substance: VORICONAZOLE
     Route: 042
     Dates: start: 20180911
  8. RYDAPT 25 MG, CAPSULE MOLLE [Suspect]
     Active Substance: MIDOSTAURIN
     Indication: ACUTE MYELOID LEUKAEMIA
     Dosage: 4 DOSAGE FORMS DAILY;
     Route: 048
     Dates: start: 20180914, end: 20180926

REACTIONS (1)
  - Drug reaction with eosinophilia and systemic symptoms [Recovered/Resolved]

NARRATIVE: CASE EVENT DATE: 20180921
